FAERS Safety Report 5340736-1 (Version None)
Quarter: 2007Q2

REPORT INFORMATION
  Report Type: 
  Country: None (occurrence: None)
  Receive Date: 20070405
  Receipt Date: 20061211
  Transmission Date: 20071010
  Serious: No
  Sender: FDA-Public Use
  Company Number: US200612001536

PATIENT
  Age: 76 Year
  Sex: Female

DRUGS (7)
  1. CYMBALTA [Suspect]
     Dosage: SEE IMAGE
     Route: 048
     Dates: start: 20040101, end: 20040101
  2. CYMBALTA [Suspect]
     Dosage: SEE IMAGE
     Route: 048
     Dates: start: 20061101
  3. PRILOSEC [Concomitant]
  4. SYNTHROID [Concomitant]
  5. KLONOPIN [Concomitant]
  6. NEURONTIN [Concomitant]
  7. VITAMINS NOS (VITAMIN NOS) [Concomitant]

REACTIONS (6)
  - DISTURBANCE IN ATTENTION [None]
  - FATIGUE [None]
  - FEELING ABNORMAL [None]
  - HYPERHIDROSIS [None]
  - MICTURITION URGENCY [None]
  - STOMACH DISCOMFORT [None]
